FAERS Safety Report 17591915 (Version 2)
Quarter: 2020Q2

REPORT INFORMATION
  Report Type: Spontaneous
  Country: US (occurrence: US)
  Receive Date: 20200327
  Receipt Date: 20200527
  Transmission Date: 20200713
  Serious: Yes (Other)
  Sender: FDA-Public Use
  Company Number: US-GILEAD-2020-0456524

PATIENT
  Age: 61 Year
  Sex: Male
  Weight: 60.7 kg

DRUGS (19)
  1. SUSTIVA [Concomitant]
     Active Substance: EFAVIRENZ
  2. AGENERASE [Concomitant]
     Active Substance: AMPRENAVIR
  3. PILOCARPINE. [Concomitant]
     Active Substance: PILOCARPINE
  4. VIREAD [Suspect]
     Active Substance: TENOFOVIR DISOPROXIL FUMARATE
     Indication: HIV INFECTION
     Dosage: 300 MG, QD
     Route: 048
     Dates: start: 20020808, end: 20050321
  5. ALENDRONATE SODIUM. [Concomitant]
     Active Substance: ALENDRONATE SODIUM
     Dosage: 70 MG
     Route: 065
     Dates: start: 20101109
  6. ZITHROMAX [Concomitant]
     Active Substance: AZITHROMYCIN DIHYDRATE
  7. NORVIR [Concomitant]
     Active Substance: RITONAVIR
  8. ARTIFICIAL TEAR [Concomitant]
     Active Substance: LANOLIN\MINERAL OIL\PETROLATUM
  9. AMITRIPTYLINE [Concomitant]
     Active Substance: AMITRIPTYLINE
  10. DIFLUCAN [Concomitant]
     Active Substance: FLUCONAZOLE
  11. ALPHAGAN P [Concomitant]
     Active Substance: BRIMONIDINE TARTRATE
  12. EPIVIR [Concomitant]
     Active Substance: LAMIVUDINE
  13. ZERIT [Concomitant]
     Active Substance: STAVUDINE
  14. COSOPT OCUMET.PLUS [Concomitant]
  15. CRIXIVAN [Concomitant]
     Active Substance: INDINAVIR SULFATE
  16. OYSTER SHELL CALCIUM [Concomitant]
     Active Substance: CALCIUM
  17. TRUVADA [Suspect]
     Active Substance: EMTRICITABINE\TENOFOVIR DISOPROXIL FUMARATE
     Indication: HIV INFECTION
     Dosage: 200/300 UNK, UNK
     Route: 048
     Dates: start: 20050321, end: 2010
  18. HYDROXYZINE [Concomitant]
     Active Substance: HYDROXYZINE HYDROCHLORIDE
  19. CLARITINE [Concomitant]
     Active Substance: LORATADINE

REACTIONS (3)
  - Bone density decreased [Unknown]
  - Economic problem [Not Recovered/Not Resolved]
  - Osteoporosis [Not Recovered/Not Resolved]

NARRATIVE: CASE EVENT DATE: 20161221
